FAERS Safety Report 5377148-0 (Version None)
Quarter: 2007Q3

REPORT INFORMATION
  Report Type: 
  Country: None (occurrence: None)
  Receive Date: 20070703
  Receipt Date: 20070625
  Transmission Date: 20080115
  Serious: Yes (Hospitalization)
  Sender: FDA-Public Use
  Company Number: NL-AMGEN-US230562

PATIENT
  Sex: Male

DRUGS (1)
  1. ENBREL [Suspect]
     Indication: RHEUMATOID ARTHRITIS
     Route: 030
     Dates: start: 20070526

REACTIONS (4)
  - COGNITIVE DISORDER [None]
  - GASTROENTERITIS [None]
  - PLEURAL EFFUSION [None]
  - PYREXIA [None]
